FAERS Safety Report 7657648-0 (Version None)
Quarter: 2011Q3

REPORT INFORMATION
  Report Type: 
  Country: None (occurrence: None)
  Receive Date: 20110804
  Receipt Date: 20110726
  Transmission Date: 20111222
  Serious: Yes (Other)
  Sender: FDA-Public Use
  Company Number: US-ASTRAZENECA-2011SE44872

PATIENT
  Age: 78 Year
  Sex: Female

DRUGS (1)
  1. NEXIUM [Suspect]
     Route: 048

REACTIONS (5)
  - PAIN IN EXTREMITY [None]
  - CHEST DISCOMFORT [None]
  - MYOCARDIAL INFARCTION [None]
  - MEMORY IMPAIRMENT [None]
  - SPINAL FRACTURE [None]
